FAERS Safety Report 4332504-4 (Version None)
Quarter: 2004Q2

REPORT INFORMATION
  Report Type: 
  Country: None (occurrence: None)
  Receive Date: 20040401
  Receipt Date: 20040322
  Transmission Date: 20050107
  Serious: No
  Sender: FDA-Public Use
  Company Number: 2004AP01739

PATIENT
  Age: 35 Year
  Sex: Male
  Weight: 64 kg

DRUGS (2)
  1. ANAPEINE [Suspect]
     Indication: EPIDURAL ANAESTHESIA
     Dosage: 10 ML ONCE ED
     Route: 008
     Dates: start: 20031015, end: 20031015
  2. OXYCODON [Suspect]
     Indication: EPIDURAL ANAESTHESIA
     Dosage: 8 MG ONCE ED
     Route: 008
     Dates: start: 20031015, end: 20031015

REACTIONS (5)
  - ANAESTHETIC COMPLICATION [None]
  - BLOOD PRESSURE DECREASED [None]
  - MEDICATION ERROR [None]
  - MYDRIASIS [None]
  - RESPIRATORY ARREST [None]
